FAERS Safety Report 10095460 (Version 1)
Quarter: 2014Q2

REPORT INFORMATION
  Report Type: Spontaneous
  Country: US (occurrence: US)
  Receive Date: 20140422
  Receipt Date: 20140422
  Transmission Date: 20141212
  Serious: Yes (Hospitalization)
  Sender: FDA-Public Use
  Company Number: US-BAYER-2014-056798

PATIENT
  Age: 41 Year
  Sex: Female

DRUGS (4)
  1. YAZ [Suspect]
  2. MECLIZINE [Concomitant]
     Indication: VERTIGO
     Dosage: 25 MG, 2 TIMES A DAY AS NEEDED
     Route: 048
  3. FENTANYL [Concomitant]
  4. VERSED [Concomitant]

REACTIONS (2)
  - Brain stem stroke [None]
  - Basilar artery thrombosis [None]
